FAERS Safety Report 6262515-3 (Version None)
Quarter: 2009Q3

REPORT INFORMATION
  Report Type: 
  Country: None (occurrence: None)
  Receive Date: 20090709
  Receipt Date: 20090625
  Transmission Date: 20100115
  Serious: Yes (Hospitalization)
  Sender: FDA-Public Use
  Company Number: KR-ELI_LILLY_AND_COMPANY-KR200905005804

PATIENT
  Age: 64 Year
  Sex: Male

DRUGS (3)
  1. HUMALOG MIX 75/25 [Suspect]
     Indication: TYPE 2 DIABETES MELLITUS
     Dosage: 12 IU, EACH MORNING
     Route: 058
  2. HUMALOG MIX 75/25 [Suspect]
     Dosage: 4 IU, EACH EVENING
     Route: 058
  3. HUMALOG MIX 75/25 [Suspect]
     Dosage: 12 IU, 2/D
     Route: 058
     Dates: start: 20090622

REACTIONS (2)
  - ROAD TRAFFIC ACCIDENT [None]
  - SKIN LACERATION [None]
